FAERS Safety Report 15281291 (Version 4)
Quarter: 2018Q4

REPORT INFORMATION
  Report Type: Spontaneous
  Country: FR (occurrence: FR)
  Receive Date: 20180815
  Receipt Date: 20181102
  Transmission Date: 20190204
  Serious: Yes (Life-Threatening, Hospitalization, Other)
  Sender: FDA-Public Use
  Company Number: FR-TEVA-2018-FR-940439

PATIENT
  Age: 85 Year
  Sex: Female
  Weight: 62 kg

DRUGS (11)
  1. CLOPIDOGREL BISULFATE. [Suspect]
     Active Substance: CLOPIDOGREL BISULFATE
     Indication: CORONARY ARTERIAL STENT INSERTION
     Dosage: 75 MILLIGRAM DAILY;
     Route: 048
     Dates: start: 20090901
  2. KARDEGIC [Suspect]
     Active Substance: ASPIRIN DL-LYSINE
     Indication: CORONARY ARTERIAL STENT INSERTION
     Dosage: 75 MILLIGRAM DAILY;
     Route: 048
     Dates: start: 20090901
  3. APIXABAN [Suspect]
     Active Substance: APIXABAN
     Indication: DEEP VEIN THROMBOSIS
     Dosage: 10 MILLIGRAM DAILY;
     Route: 048
     Dates: start: 20171031, end: 20171102
  4. ESOMEPRAZOLE. [Concomitant]
     Active Substance: ESOMEPRAZOLE MAGNESIUM
     Indication: ANTIPLATELET THERAPY
     Route: 048
  5. ESOMEPRAZOLE. [Concomitant]
     Active Substance: ESOMEPRAZOLE MAGNESIUM
     Indication: PROPHYLAXIS
  6. FUROSEMIDE. [Concomitant]
     Active Substance: FUROSEMIDE
     Indication: CARDIAC FAILURE
     Route: 048
  7. ASPIRIN. [Suspect]
     Active Substance: ASPIRIN
     Indication: CORONARY ARTERIAL STENT INSERTION
     Route: 048
     Dates: start: 20090901
  8. ATENOLOL. [Concomitant]
     Active Substance: ATENOLOL
     Indication: ISCHAEMIC CARDIOMYOPATHY
     Route: 048
  9. CALCIPARINE [Suspect]
     Active Substance: HEPARIN CALCIUM
     Indication: DEEP VEIN THROMBOSIS
     Route: 042
     Dates: start: 20171027
  10. FENOFIBRATE. [Concomitant]
     Active Substance: FENOFIBRATE
     Indication: HYPERTRIGLYCERIDAEMIA
     Route: 048
  11. PLAVIX [Suspect]
     Active Substance: CLOPIDOGREL BISULFATE
     Indication: PRODUCT USED FOR UNKNOWN INDICATION
     Route: 048
     Dates: start: 20171026

REACTIONS (5)
  - Adenocarcinoma of colon [Recovering/Resolving]
  - Gastrointestinal haemorrhage [Recovered/Resolved]
  - Rectosigmoid cancer [Not Recovered/Not Resolved]
  - Colorectal adenocarcinoma [Not Recovered/Not Resolved]
  - Colorectal cancer [Unknown]

NARRATIVE: CASE EVENT DATE: 20171102
